FAERS Safety Report 5120519-8 (Version None)
Quarter: 2006Q3

REPORT INFORMATION
  Report Type: 
  Country: None (occurrence: None)
  Receive Date: 20060928
  Receipt Date: 20060918
  Transmission Date: 20061208
  Serious: Yes (Life-Threatening)
  Sender: FDA-Public Use
  Company Number: 2006113303

PATIENT
  Age: 70 Year
  Sex: Female
  Weight: 90 kg

DRUGS (1)
  1. LONOLOX (MINOXIDIL) [Suspect]
     Indication: HYPERTENSION
     Dosage: 5 MG (2.5 MG, TWICE DAILY), ORAL
     Route: 048
     Dates: start: 20060829, end: 20060902

REACTIONS (2)
  - GRANULOCYTOPENIA [None]
  - PNEUMONIA [None]
